FAERS Safety Report 12371046 (Version 1)
Quarter: 2016Q2

REPORT INFORMATION
  Report Type: Report from Study
  Country: US (occurrence: US)
  Receive Date: 20160516
  Receipt Date: 20160516
  Transmission Date: 20160815
  Serious: Yes (Hospitalization, Other)
  Sender: FDA-Public Use
  Company Number: PHEH2016US011273

PATIENT
  Sex: Female

DRUGS (1)
  1. ENTRESTO [Suspect]
     Active Substance: SACUBITRIL\VALSARTAN
     Indication: CARDIAC FAILURE
     Dosage: 24/26 MG, UNK
     Route: 048

REACTIONS (7)
  - Hypotension [Unknown]
  - Head injury [Unknown]
  - Loss of consciousness [Unknown]
  - Cough [Unknown]
  - Dehydration [Unknown]
  - Malaise [Unknown]
  - Blood potassium decreased [Unknown]
